FAERS Safety Report 7656646-0 (Version None)
Quarter: 2011Q3

REPORT INFORMATION
  Report Type: 
  Country: None (occurrence: None)
  Receive Date: 20110804
  Receipt Date: 20110726
  Transmission Date: 20111222
  Serious: Yes (Hospitalization)
  Sender: FDA-Public Use
  Company Number: CZ-JNJFOC-20110609331

PATIENT
  Sex: Male
  Weight: 104 kg

DRUGS (4)
  1. REMICADE [Suspect]
     Indication: PSORIASIS
     Route: 042
     Dates: start: 20110630
  2. REMICADE [Suspect]
     Route: 042
     Dates: start: 20110501
  3. REMICADE [Suspect]
     Route: 042
     Dates: start: 20110407
  4. REMICADE [Suspect]
     Dosage: TREATED WITH INFLIXIMAB FOR APPROXIMATELY 2 YEARS
     Route: 042
     Dates: start: 20110120

REACTIONS (2)
  - HEARING IMPAIRED [None]
  - BORRELIA TEST POSITIVE [None]
